FAERS Safety Report 8083050-6 (Version None)
Quarter: 2012Q1

REPORT INFORMATION
  Report Type: 
  Country: None (occurrence: None)
  Receive Date: 20120127
  Receipt Date: 20110302
  Transmission Date: 20120608
  Serious: No
  Sender: FDA-Public Use
  Company Number: US-ABBOTT-11P-163-0708599-00

PATIENT
  Age: 32 Year
  Sex: Female

DRUGS (3)
  1. CAPATROL [Concomitant]
     Indication: CONVULSION
     Route: 048
  2. HUMIRA [Suspect]
     Indication: PSORIASIS
     Dates: start: 20110115, end: 20110201
  3. TOPAMAX [Concomitant]
     Indication: CONVULSION
     Route: 048

REACTIONS (1)
  - EAR INFECTION [None]
